FAERS Safety Report 13490132 (Version 1)
Quarter: 2017Q2

REPORT INFORMATION
  Report Type: Spontaneous
  Country: US (occurrence: US)
  Receive Date: 20170426
  Receipt Date: 20170426
  Transmission Date: 20170830
  Serious: Yes (Other)
  Sender: FDA-Public Use
  Company Number: PHHY2017US060276

PATIENT
  Age: 31 Year
  Sex: Female
  Weight: 80 kg

DRUGS (1)
  1. VORICONAZOLE. [Suspect]
     Active Substance: VORICONAZOLE
     Indication: PULMONARY MASS
     Dosage: 128 MG/KG, QD
     Route: 042

REACTIONS (5)
  - Renal failure [Unknown]
  - Condition aggravated [Unknown]
  - Pulmonary mass [Unknown]
  - Respiratory failure [Unknown]
  - Visual impairment [Unknown]
